FAERS Safety Report 6475044-9 (Version None)
Quarter: 2009Q4

REPORT INFORMATION
  Report Type: 
  Country: None (occurrence: None)
  Receive Date: 20091204
  Receipt Date: 20090326
  Transmission Date: 20100525
  Serious: Yes (Death, Hospitalization)
  Sender: FDA-Public Use
  Company Number: FR-ELI_LILLY_AND_COMPANY-FR200904000127

PATIENT
  Sex: Male
  Weight: 105 kg

DRUGS (9)
  1. GEMCITABINE HCL [Suspect]
     Indication: NON-SMALL CELL LUNG CANCER
     Dosage: 1000 MG/M2, UNKNOWN
     Route: 042
     Dates: start: 20070821, end: 20070823
  2. CISPLATIN [Suspect]
     Indication: NON-SMALL CELL LUNG CANCER
     Dosage: 80 MG/M2, UNKNOWN
     Route: 042
     Dates: start: 20070821, end: 20070823
  3. SOPHIDONE [Concomitant]
     Dosage: 16 MG, 2/D
     Route: 065
  4. EUPANTOL [Concomitant]
     Dosage: 40 MG, DAILY (1/D)
     Route: 065
  5. MOTILIUM [Concomitant]
     Dosage: UNK, UNKNOWN
     Route: 065
  6. RIVOTRIL [Concomitant]
     Dosage: 10 GTT, DAILY (1/D)
     Route: 065
  7. MYOLASTAN [Concomitant]
     Dosage: 2 D/F, DAILY (1/D)
     Route: 065
  8. MUTESA [Concomitant]
     Dosage: 1 D/F, 3/D
     Route: 065
  9. ACTISKENAN [Concomitant]
     Dosage: 20 MG, 3/D
     Route: 065

REACTIONS (4)
  - FOOD INTOLERANCE [None]
  - GENERAL PHYSICAL HEALTH DETERIORATION [None]
  - NAUSEA [None]
  - VOMITING [None]
